FAERS Safety Report 7076774-0 (Version None)
Quarter: 2010Q4

REPORT INFORMATION
  Report Type: 
  Country: None (occurrence: None)
  Receive Date: 20101101
  Receipt Date: 20101021
  Transmission Date: 20110411
  Serious: Yes (Hospitalization)
  Sender: FDA-Public Use
  Company Number: US-JNJFOC-20101006087

PATIENT
  Sex: Female
  Weight: 85.28 kg

DRUGS (3)
  1. REMICADE [Suspect]
     Indication: RHEUMATOID ARTHRITIS
     Route: 042
  2. ^ARTHRITIS MEDICINE^ [Concomitant]
     Indication: ARTHRITIS
     Route: 065
  3. ANTIHYPERTENSION [Concomitant]
     Indication: HYPERTENSION

REACTIONS (3)
  - BLOOD GLUCOSE INCREASED [None]
  - PNEUMONIA [None]
  - SINUSITIS [None]
